FAERS Safety Report 18093034 (Version 1)
Quarter: 2020Q3

REPORT INFORMATION
  Report Type: Other
  Country: US (occurrence: US)
  Receive Date: 20200730
  Receipt Date: 20200730
  Transmission Date: 20201103
  Serious: Yes (Hospitalization, Other)
  Sender: FDA-Public Use
  Company Number: US-ROCHE-2645964

PATIENT
  Sex: Male

DRUGS (20)
  1. FISH OIL [Concomitant]
     Active Substance: FISH OIL
  2. GABAPENTIN. [Concomitant]
     Active Substance: GABAPENTIN
  3. INVOKANA [Concomitant]
     Active Substance: CANAGLIFLOZIN
     Route: 048
  4. LEVITRA [Concomitant]
     Active Substance: VARDENAFIL HYDROCHLORIDE
     Route: 048
  5. MAGNESIUM OXIDE. [Concomitant]
     Active Substance: MAGNESIUM OXIDE
     Route: 048
  6. ASPIRIN. [Concomitant]
     Active Substance: ASPIRIN
  7. IBUPROFEN. [Concomitant]
     Active Substance: IBUPROFEN
     Route: 048
  8. METFORMIN [Concomitant]
     Active Substance: METFORMIN HYDROCHLORIDE
  9. TRADJENTA [Concomitant]
     Active Substance: LINAGLIPTIN
     Route: 048
  10. BUPROPION. [Concomitant]
     Active Substance: BUPROPION
     Route: 048
  11. TYLENOL EXTRA STRENGTH [Concomitant]
     Active Substance: ACETAMINOPHEN
     Route: 048
  12. VITAMIN D3 [Concomitant]
     Active Substance: CHOLECALCIFEROL
  13. SIMVASTATIN. [Concomitant]
     Active Substance: SIMVASTATIN
     Route: 048
  14. TAMSULOSIN [Concomitant]
     Active Substance: TAMSULOSIN
  15. TRIPROLIDINE [Concomitant]
     Active Substance: TRIPROLIDINE
     Route: 048
  16. RITUXAN [Suspect]
     Active Substance: RITUXIMAB
     Indication: NON-HODGKIN^S LYMPHOMA
     Route: 065
  17. CINNAMON. [Concomitant]
     Active Substance: CINNAMON
  18. GLIPIZIDE. [Concomitant]
     Active Substance: GLIPIZIDE
     Route: 048
  19. LISINOPRIL. [Concomitant]
     Active Substance: LISINOPRIL
     Route: 048
  20. VITAMIN B6 [Concomitant]
     Active Substance: PYRIDOXINE HYDROCHLORIDE
     Route: 048

REACTIONS (9)
  - Arthritis [Unknown]
  - Hyperpyrexia [Unknown]
  - Neuropathy peripheral [Recovering/Resolving]
  - Weight decreased [Unknown]
  - Upper respiratory tract infection [Unknown]
  - Limb injury [Recovering/Resolving]
  - Blood glucose increased [Unknown]
  - Cough [Unknown]
  - Visual impairment [Unknown]
